FAERS Safety Report 4792445-5 (Version None)
Quarter: 2005Q4

REPORT INFORMATION
  Report Type: 
  Country: None (occurrence: None)
  Receive Date: 20051010
  Receipt Date: 20050830
  Transmission Date: 20060501
  Serious: No
  Sender: FDA-Public Use
  Company Number: US-GLAXOSMITHKLINE-A0572406A

PATIENT
  Age: 55 Year
  Sex: Female

DRUGS (6)
  1. BEXXAR [Suspect]
     Indication: NON-HODGKIN'S LYMPHOMA
     Dosage: 46 PER DAY
     Route: 042
     Dates: start: 20050805
  2. POTASSIUM IODIDE [Suspect]
  3. CRESTOR [Concomitant]
  4. NADOLOL [Concomitant]
  5. QUINAPRIL [Concomitant]
  6. LANOXIN [Concomitant]

REACTIONS (6)
  - DYSGEUSIA [None]
  - DYSPEPSIA [None]
  - FULL BLOOD COUNT DECREASED [None]
  - NAUSEA [None]
  - PYREXIA [None]
  - STOMACH DISCOMFORT [None]
